FAERS Safety Report 25717741 (Version 1)
Quarter: 2025Q3

REPORT INFORMATION
  Report Type: Spontaneous
  Country: EU (occurrence: EU)
  Receive Date: 20250822
  Receipt Date: 20250822
  Transmission Date: 20251020
  Serious: Yes (Life-Threatening)
  Sender: MYLAN
  Company Number: None

PATIENT
  Age: 49 Year
  Sex: Male
  Weight: 103 kg

DRUGS (4)
  1. KETOPROFEN [Suspect]
     Active Substance: KETOPROFEN
     Indication: Pain
     Dosage: 1 DOSAGE FORM, QD
     Dates: start: 20250627, end: 20250627
  2. KETOPROFEN [Suspect]
     Active Substance: KETOPROFEN
     Dosage: 1 DOSAGE FORM, QD
     Route: 065
     Dates: start: 20250627, end: 20250627
  3. KETOPROFEN [Suspect]
     Active Substance: KETOPROFEN
     Dosage: 1 DOSAGE FORM, QD
     Route: 065
     Dates: start: 20250627, end: 20250627
  4. KETOPROFEN [Suspect]
     Active Substance: KETOPROFEN
     Dosage: 1 DOSAGE FORM, QD
     Dates: start: 20250627, end: 20250627

REACTIONS (1)
  - Cardio-respiratory arrest [Recovered/Resolved]

NARRATIVE: CASE EVENT DATE: 20250627
